FAERS Safety Report 14201193 (Version 1)
Quarter: 2017Q4

REPORT INFORMATION
  Report Type: Spontaneous
  Country: US (occurrence: US)
  Receive Date: 20171117
  Receipt Date: 20171117
  Transmission Date: 20180321
  Serious: No
  Sender: FDA-Public Use
  Company Number: US-PERRIGO-16US021129

PATIENT
  Age: 65 Year
  Sex: Male
  Weight: 79.37 kg

DRUGS (3)
  1. OXYCONTIN [Concomitant]
     Active Substance: OXYCODONE HYDROCHLORIDE
     Indication: PAIN
     Dosage: UNK
     Route: 065
  2. UROLOGICALS [Suspect]
     Active Substance: UNSPECIFIED INGREDIENT
     Indication: BENIGN PROSTATIC HYPERPLASIA
     Dosage: 1 CAPSULE, QD
     Route: 048
     Dates: start: 20160801, end: 20161013
  3. POLYETHYLENE GLYCOL 3350. [Suspect]
     Active Substance: POLYETHYLENE GLYCOL 3350
     Indication: CONSTIPATION
     Dosage: 12 G, DAILY PRN
     Route: 048
     Dates: start: 2015, end: 20161018

REACTIONS (2)
  - Underdose [Recovered/Resolved]
  - Hyperhidrosis [Not Recovered/Not Resolved]

NARRATIVE: CASE EVENT DATE: 2015
